FAERS Safety Report 11375889 (Version 1)
Quarter: 2015Q3

REPORT INFORMATION
  Report Type: Spontaneous
  Country: US (occurrence: US)
  Receive Date: 20150813
  Receipt Date: 20150813
  Transmission Date: 20151125
  Serious: Yes (Other)
  Sender: FDA-Public Use
  Company Number: US-VIIV HEALTHCARE LIMITED-US2014GSK054645

PATIENT
  Sex: Male

DRUGS (6)
  1. TIVICAY [Suspect]
     Active Substance: DOLUTEGRAVIR SODIUM
     Indication: HIV INFECTION
     Dosage: 50 MG, QD
     Route: 048
     Dates: start: 201401, end: 20140612
  2. VITAMIN C [Concomitant]
     Active Substance: ASCORBIC ACID
  3. LAMIVUDINE-HIV [Suspect]
     Active Substance: LAMIVUDINE
     Indication: HIV INFECTION
  4. FOLIC ACID. [Concomitant]
     Active Substance: FOLIC ACID
  5. EPIVIR [Suspect]
     Active Substance: LAMIVUDINE
     Indication: HIV INFECTION
     Dosage: UNK, U
     Dates: start: 1995
  6. PRAVASTATIN [Concomitant]
     Active Substance: PRAVASTATIN\PRAVASTATIN SODIUM

REACTIONS (17)
  - Depressed mood [Unknown]
  - Weight increased [Recovering/Resolving]
  - Anxiety [Unknown]
  - Low density lipoprotein increased [Unknown]
  - Prostatic operation [Unknown]
  - Headache [Unknown]
  - Contusion [Unknown]
  - Benign prostatic hyperplasia [Unknown]
  - Suicidal ideation [Unknown]
  - Insomnia [Unknown]
  - Blood creatine phosphokinase increased [Unknown]
  - Nail discolouration [Unknown]
  - Disturbance in attention [Unknown]
  - Inflammation [Unknown]
  - Drug ineffective [Unknown]
  - Lipodystrophy acquired [Unknown]
  - Prostatomegaly [Unknown]
